FAERS Safety Report 11553248 (Version 3)
Quarter: 2015Q4

REPORT INFORMATION
  Report Type: Report from Study
  Country: US (occurrence: US)
  Receive Date: 20150925
  Receipt Date: 20151013
  Transmission Date: 20160304
  Serious: Yes (Hospitalization)
  Sender: FDA-Public Use
  Company Number: PHHO2015US014570

PATIENT
  Age: 70 Year
  Sex: Female
  Weight: 62.1 kg

DRUGS (4)
  1. ODOMZO [Suspect]
     Active Substance: SONIDEGIB
     Dosage: 400 MG, QD
     Route: 048
     Dates: start: 20150922
  2. PREDNISONE. [Concomitant]
     Active Substance: PREDNISONE
     Indication: CHRONIC GRAFT VERSUS HOST DISEASE
     Dosage: 5 MG, QD
     Route: 048
     Dates: start: 20070305
  3. ODOMZO [Suspect]
     Active Substance: SONIDEGIB
     Indication: CHRONIC GRAFT VERSUS HOST DISEASE
     Dosage: 400 MG, QD
     Route: 048
     Dates: start: 20150701, end: 20150912
  4. MYCOPHENOLATE MOFETIL. [Concomitant]
     Active Substance: MYCOPHENOLATE MOFETIL
     Indication: CHRONIC GRAFT VERSUS HOST DISEASE
     Dosage: 1000 MG, QD
     Route: 048
     Dates: start: 20070530

REACTIONS (1)
  - Device related infection [Recovered/Resolved]

NARRATIVE: CASE EVENT DATE: 20150912
